FAERS Safety Report 16534195 (Version 1)
Quarter: 2019Q3

REPORT INFORMATION
  Report Type: Spontaneous
  Country: US (occurrence: US)
  Receive Date: 20190704
  Receipt Date: 20190704
  Transmission Date: 20191004
  Serious: Yes (Disabling)
  Sender: FDA-Public Use
  Company Number: None

PATIENT
  Age: 41 Year
  Sex: Female
  Weight: 65.25 kg

DRUGS (1)
  1. CIPROFLOXACIN. [Suspect]
     Active Substance: CIPROFLOXACIN
     Indication: URINARY TRACT INFECTION
     Route: 048
     Dates: start: 20140528, end: 20140528

REACTIONS (13)
  - Psychotic disorder [None]
  - Suicidal ideation [None]
  - Muscle twitching [None]
  - Palpitations [None]
  - Premature menopause [None]
  - Dizziness [None]
  - Muscle atrophy [None]
  - Tendon disorder [None]
  - Anxiety [None]
  - Feeling abnormal [None]
  - Exercise lack of [None]
  - Hypoaesthesia [None]
  - Muscular weakness [None]

NARRATIVE: CASE EVENT DATE: 20140530
